FAERS Safety Report 4919740-0 (Version None)
Quarter: 2006Q1

REPORT INFORMATION
  Report Type: 
  Country: None (occurrence: None)
  Receive Date: 20060221
  Receipt Date: 20060209
  Transmission Date: 20060701
  Serious: Yes (Hospitalization)
  Sender: FDA-Public Use
  Company Number: 2006011078

PATIENT
  Age: 24 Year
  Sex: Male

DRUGS (4)
  1. UNASYN [Suspect]
     Indication: CELLULITIS
     Dosage: 3 GRAM (1 GRAM, TID), INTRAVENOUS
     Route: 042
     Dates: start: 20040515, end: 20040515
  2. AMOXICILLIN [Suspect]
     Indication: CELLULITIS
     Dosage: 750 MG (250 MG, TID), ORAL
     Route: 048
     Dates: start: 20040515, end: 20040518
  3. OTHER COLD COMBINATION PREPARATIONS (OTHER COLD COMBINATION PREPARATIO [Concomitant]
  4. BUFFERIN (ACETYLSALICYLIC [Concomitant]

REACTIONS (2)
  - ACUTE GENERALISED EXANTHEMATOUS PUSTULOSIS [None]
  - CELLULITIS [None]
